FAERS Safety Report 6976640-2 (Version None)
Quarter: 2010Q3

REPORT INFORMATION
  Report Type: 
  Country: None (occurrence: None)
  Receive Date: 20100910
  Receipt Date: 20090427
  Transmission Date: 20110219
  Serious: No
  Sender: FDA-Public Use
  Company Number: US-WYE-H09129609

PATIENT
  Sex: Female
  Weight: 79.45 kg

DRUGS (3)
  1. PRISTIQ [Suspect]
     Indication: FIBROMYALGIA
     Route: 048
     Dates: start: 20090425, end: 20090427
  2. VITAMINS [Concomitant]
  3. DIOVAN [Concomitant]

REACTIONS (2)
  - HYPERHIDROSIS [None]
  - INSOMNIA [None]
